FAERS Safety Report 8391886-7 (Version None)
Quarter: 2012Q2

REPORT INFORMATION
  Report Type: 
  Country: None (occurrence: None)
  Receive Date: 20120529
  Receipt Date: 20120517
  Transmission Date: 20120825
  Serious: Yes (Hospitalization)
  Sender: FDA-Public Use
  Company Number: US-GLAXOSMITHKLINE-A0978928A

PATIENT
  Age: 58 Year
  Sex: Female
  Weight: 65.5 kg

DRUGS (1)
  1. PAZOPANIB [Suspect]
     Indication: UTERINE CANCER
     Dosage: 800MG PER DAY
     Route: 048
     Dates: start: 20110818

REACTIONS (4)
  - HYPOCALCAEMIA [None]
  - URINARY RETENTION [None]
  - BLOOD CREATININE INCREASED [None]
  - ANAEMIA [None]
